FAERS Safety Report 10185039 (Version 1)
Quarter: 2014Q2

REPORT INFORMATION
  Report Type: Spontaneous
  Country: US (occurrence: US)
  Receive Date: 20140521
  Receipt Date: 20140521
  Transmission Date: 20141212
  Serious: Yes (Hospitalization)
  Sender: FDA-Public Use
  Company Number: US-BAYER-2014-075334

PATIENT
  Age: 34 Year
  Sex: Female

DRUGS (5)
  1. YAZ [Suspect]
  2. AUGMENTIN [Concomitant]
  3. DOCUSATE [Concomitant]
  4. SENNA [Concomitant]
  5. LORTAB [Concomitant]

REACTIONS (3)
  - Vena cava thrombosis [Recovered/Resolved]
  - Pulmonary embolism [None]
  - Atrial thrombosis [Recovered/Resolved]
